FAERS Safety Report 5508595-1 (Version None)
Quarter: 2007Q4

REPORT INFORMATION
  Report Type: 
  Country: None (occurrence: None)
  Receive Date: 20071107
  Receipt Date: 20071102
  Transmission Date: 20080405
  Serious: Yes (Life-Threatening)
  Sender: FDA-Public Use
  Company Number: GB-NOVOPROD-269013

PATIENT
  Age: 66 Year
  Sex: Male
  Weight: 75 kg

DRUGS (5)
  1. NORDITROPIN [Suspect]
     Indication: DRUG USE FOR UNKNOWN INDICATION
     Dosage: .2 MG, QD
     Route: 058
     Dates: start: 20040630, end: 20071024
  2. ADALAT CC [Concomitant]
     Dosage: 30 MG, QD
     Route: 048
  3. LISINOPRIL [Concomitant]
     Dosage: 5 MG, QD
     Route: 048
  4. PRAVASTATIN [Concomitant]
     Dosage: 40 MG, QD
     Route: 048
  5. ALFUZOSIN HCL [Concomitant]
     Dosage: 10 MG, QD

REACTIONS (1)
  - NASOPHARYNGEAL CANCER RECURRENT [None]
